FAERS Safety Report 5485278-8 (Version None)
Quarter: 2007Q4

REPORT INFORMATION
  Report Type: 
  Country: None (occurrence: None)
  Receive Date: 20071015
  Receipt Date: 20071009
  Transmission Date: 20080405
  Serious: Yes (Other)
  Sender: FDA-Public Use
  Company Number: DK-AVENTIS-200719312GDDC

PATIENT
  Age: 8 Year
  Sex: Male

DRUGS (1)
  1. MINIRIN [Suspect]
     Indication: ENURESIS
     Route: 048

REACTIONS (2)
  - CONFUSIONAL STATE [None]
  - DELIRIUM [None]
